FAERS Safety Report 22054020 (Version 1)
Quarter: 2023Q1

REPORT INFORMATION
  Report Type: Spontaneous
  Country: US (occurrence: US)
  Receive Date: 20230302
  Receipt Date: 20230302
  Transmission Date: 20230418
  Serious: Yes (Other)
  Sender: FDA-Public Use
  Company Number: US-NOVOPROD-1029459

PATIENT
  Age: 68 Year
  Sex: Female
  Weight: 68.04 kg

DRUGS (21)
  1. LEVEMIR [Suspect]
     Active Substance: INSULIN DETEMIR
     Indication: Type 2 diabetes mellitus
     Dosage: 32 IU, QD (LONG ACTING)
     Route: 058
     Dates: start: 2013
  2. SYNTHROID [Concomitant]
     Active Substance: LEVOTHYROXINE SODIUM
     Indication: Thyroid cancer
     Dosage: 175 ?G, QD
     Dates: start: 2013
  3. METFORMIN [Concomitant]
     Active Substance: METFORMIN HYDROCHLORIDE
     Indication: Type 2 diabetes mellitus
     Dosage: 2000 MG, QD
     Dates: start: 2013
  4. HUMALOG [Concomitant]
     Active Substance: INSULIN LISPRO
     Indication: Type 2 diabetes mellitus
     Dosage: DOSE VARIES
     Dates: start: 2014
  5. PREGABALIN [Concomitant]
     Active Substance: PREGABALIN
     Indication: Joint injury
     Dosage: 300 MG, QD
     Dates: start: 2021
  6. COLCHICINE [Concomitant]
     Active Substance: COLCHICINE
     Indication: Inflammation
     Dosage: 0.6 MG, QD(IN THE MORNING)
     Dates: start: 202208
  7. BRILINTA [Concomitant]
     Active Substance: TICAGRELOR
     Indication: Anticoagulant therapy
     Dosage: 180 MG, QD
     Dates: start: 202208
  8. ASPIRIN [Concomitant]
     Active Substance: ASPIRIN
     Indication: Prophylaxis
     Dosage: 81 MG, QD
  9. CARVEDILOL [Concomitant]
     Active Substance: CARVEDILOL
     Indication: Prophylaxis
     Dosage: 50 MG, QD
  10. CARVEDILOL [Concomitant]
     Active Substance: CARVEDILOL
     Indication: Blood pressure management
  11. ENALAPRIL [Concomitant]
     Active Substance: ENALAPRIL
     Indication: Blood pressure management
     Dosage: 30 MG, QD
     Dates: start: 2003
  12. ATORVASTATIN [Concomitant]
     Active Substance: ATORVASTATIN
     Indication: Blood cholesterol
     Dosage: 80 MG, QD
     Dates: start: 2016
  13. VASCEPA [Concomitant]
     Active Substance: ICOSAPENT ETHYL
     Indication: Blood cholesterol
     Dosage: 4 MG, QD
     Dates: start: 2021
  14. XANAX [Concomitant]
     Active Substance: ALPRAZOLAM
     Indication: Product used for unknown indication
     Dosage: 2 MG, QD
     Dates: start: 2000
  15. FLUOXETINE [Concomitant]
     Active Substance: FLUOXETINE HYDROCHLORIDE
     Indication: Mood swings
     Dosage: 40 MG, QD
     Dates: start: 2018
  16. PANTOPRAZOLE [Concomitant]
     Active Substance: PANTOPRAZOLE
     Indication: Gout
     Dosage: 40 MG, QD(IN MORNING)
     Dates: start: 202208
  17. COLACE [Concomitant]
     Active Substance: DOCUSATE SODIUM
     Indication: Constipation
     Dosage: 200 MG, QD
     Dates: start: 2020
  18. VITAMIN D3 [Concomitant]
     Active Substance: CHOLECALCIFEROL
     Indication: Product used for unknown indication
     Dosage: 1000 MG, QD
  19. MINERALS\VITAMINS [Concomitant]
     Active Substance: MINERALS\VITAMINS
     Indication: Product used for unknown indication
     Dosage: ONCE A DAY
     Route: 048
  20. TYLENOL [Concomitant]
     Active Substance: ACETAMINOPHEN
     Indication: Product used for unknown indication
     Dosage: NOT MORE THAN 100 MG A DAY, 2 TABLETS AT A TIME, ALMOST EVERY DAY
     Route: 048
  21. ZOFRAN [Concomitant]
     Active Substance: ONDANSETRON HYDROCHLORIDE
     Indication: Product used for unknown indication
     Dosage: 8 MG, QD
     Route: 048

REACTIONS (2)
  - Pericardial effusion [Unknown]
  - Spinal osteoarthritis [Unknown]

NARRATIVE: CASE EVENT DATE: 20220701
